FAERS Safety Report 9177720 (Version 1)
Quarter: 2013Q1

REPORT INFORMATION
  Report Type: Spontaneous
  Country: GB (occurrence: None)
  Receive Date: 20130319
  Receipt Date: 20130319
  Transmission Date: 20140127
  Serious: Yes (Hospitalization)
  Sender: FDA-Public Use
  Company Number: AUR-APL-2013-02306

PATIENT
  Age: 20 Year
  Sex: Male

DRUGS (2)
  1. AMOXICILLIN+CLAVULANIC ACID (AMOXICILLIN, CLAVULANIC ACID) [Suspect]
     Dosage: 3 DOSAGE FORMS
     Route: 048
     Dates: start: 201302, end: 201302
  2. LYMECYCLINE [Suspect]
     Dosage: 408 MG (408 MG, 1 IN 1 D)
     Route: 048

REACTIONS (5)
  - Liver function test abnormal [None]
  - Jaundice [None]
  - Alanine aminotransferase increased [None]
  - Blood alkaline phosphatase increased [None]
  - Blood bilirubin increased [None]
